FAERS Safety Report 8472953-6 (Version None)
Quarter: 2012Q2

REPORT INFORMATION
  Report Type: 
  Country: None (occurrence: None)
  Receive Date: 20120627
  Receipt Date: 20120622
  Transmission Date: 20120825
  Serious: Yes (Death, Other)
  Sender: FDA-Public Use
  Company Number: US-CELGENEUS-163-21880-12051966

PATIENT
  Sex: Female

DRUGS (12)
  1. BYSTOLIC [Concomitant]
     Dosage: 5 MILLIGRAM
     Route: 065
     Dates: start: 20110615, end: 20120505
  2. REVLIMID [Suspect]
     Dosage: 5 MILLIGRAM
     Route: 048
     Dates: start: 20100115, end: 20120401
  3. AMLODIPINE [Concomitant]
     Dosage: 2.5 MILLIGRAM
     Route: 065
     Dates: start: 20111003, end: 20120508
  4. NEURONTIN [Concomitant]
     Indication: PAIN MANAGEMENT
     Dosage: 300 MILLIGRAM
     Route: 065
  5. PRBC [Concomitant]
     Route: 065
  6. PLATELETS [Concomitant]
     Indication: THROMBOCYTOPENIA
     Route: 065
  7. DURAGESIC-100 [Concomitant]
     Indication: BREAKTHROUGH PAIN
     Dosage: 25 MICROGRAM
     Route: 065
  8. LORAZEPAM [Concomitant]
     Indication: ANXIETY
     Route: 065
  9. DIOVAN [Concomitant]
     Dosage: 80 MILLIGRAM
     Route: 065
     Dates: start: 20110615, end: 20120508
  10. LACTULOSE [Concomitant]
     Indication: CONSTIPATION
     Route: 065
  11. OXYCODONE HCL [Concomitant]
     Indication: BREAKTHROUGH PAIN
     Dosage: 10 MILLIGRAM
     Route: 065
  12. VICODIN [Concomitant]
     Indication: PAIN
     Route: 065

REACTIONS (4)
  - NEOPLASM PROGRESSION [None]
  - DISSEMINATED INTRAVASCULAR COAGULATION [None]
  - SKIN NECROSIS [None]
  - SEPSIS [None]
